FAERS Safety Report 5385206-X (Version None)
Quarter: 2007Q3

REPORT INFORMATION
  Report Type: 
  Country: None (occurrence: None)
  Receive Date: 20070706
  Receipt Date: 20070706
  Transmission Date: 20080115
  Serious: No
  Sender: FDA-Public Use
  Company Number: None

PATIENT
  Age: 14 Year
  Sex: Female
  Weight: 63.9572 kg

DRUGS (1)
  1. BENZOYL PEROXIDE 5 [Suspect]
     Dosage: APPLY HS TOP
     Route: 061

REACTIONS (1)
  - RASH [None]
